FAERS Safety Report 7260473-6 (Version None)
Quarter: 2011Q1

REPORT INFORMATION
  Report Type: 
  Country: None (occurrence: None)
  Receive Date: 20110130
  Receipt Date: 20101122
  Transmission Date: 20110831
  Serious: No
  Sender: FDA-Public Use
  Company Number: US-ABBOTT-10P-163-0686759-00

PATIENT
  Sex: Female
  Weight: 93.978 kg

DRUGS (7)
  1. PHENERGAN [Concomitant]
     Indication: NAUSEA
     Dosage: FOR NAUSEA FROM SINUS DRAINAGE
     Route: 048
  2. FLEXERIL [Concomitant]
     Indication: ARTHRALGIA
     Dosage: MINIMAL USE
     Route: 048
  3. VICODIN [Concomitant]
     Indication: ARTHRALGIA
     Dosage: MINIMAL USE
     Route: 048
  4. HUMIRA [Suspect]
     Indication: PSORIATIC ARTHROPATHY
     Route: 058
     Dates: start: 20100501, end: 20101001
  5. HUMIRA [Suspect]
     Indication: PSORIASIS
  6. METOPROLOL [Concomitant]
     Indication: HYPERTENSION
     Route: 048
  7. SYNTHROID [Concomitant]
     Indication: HYPOTHYROIDISM
     Route: 048

REACTIONS (2)
  - ARTHRALGIA [None]
  - FATIGUE [None]
